FAERS Safety Report 6062504-8 (Version None)
Quarter: 2009Q1

REPORT INFORMATION
  Report Type: 
  Country: None (occurrence: None)
  Receive Date: 20090202
  Receipt Date: 20090202
  Transmission Date: 20090719
  Serious: Yes (Hospitalization)
  Sender: FDA-Public Use
  Company Number: None

PATIENT
  Sex: Female
  Weight: 69.4 kg

DRUGS (1)
  1. CAMPATH [Suspect]
     Dosage: 60 MG

REACTIONS (2)
  - LEGIONELLA INFECTION [None]
  - PNEUMONIA [None]
